FAERS Safety Report 6528514-9 (Version None)
Quarter: 2010Q1

REPORT INFORMATION
  Report Type: 
  Country: None (occurrence: None)
  Receive Date: 20100106
  Receipt Date: 20091209
  Transmission Date: 20100710
  Serious: Yes (Life-Threatening, Hospitalization)
  Sender: FDA-Public Use
  Company Number: PHHY2009TZ56374

PATIENT
  Sex: Female
  Weight: 30 kg

DRUGS (2)
  1. CGP 56697 T31707+ [Suspect]
     Dosage: 2 TABLETS TWICE DAILY FOR 3/7
     Route: 048
     Dates: start: 20091001, end: 20091001
  2. PANADOL [Concomitant]
     Dosage: 500 MG, UNK
     Dates: start: 20091001

REACTIONS (3)
  - PRURITUS [None]
  - RASH [None]
  - SKIN EXFOLIATION [None]
